FAERS Safety Report 5568138-3 (Version None)
Quarter: 2007Q4

REPORT INFORMATION
  Report Type: 
  Country: None (occurrence: None)
  Receive Date: 20071218
  Receipt Date: 20071204
  Transmission Date: 20080405
  Serious: Yes (Death, Hospitalization)
  Sender: FDA-Public Use
  Company Number: US-JNJFOC-20071105253

PATIENT
  Age: 64 Year
  Sex: Female
  Weight: 50.1 kg

DRUGS (13)
  1. DECITABINE (DECITABINE) LYOPHILIZED POWDER [Suspect]
     Indication: OVARIAN CANCER
     Dosage: 10 MG, IN 1 DAY, INTRAVENOUS
     Route: 042
     Dates: start: 20071029, end: 20071102
  2. TAMOXIFEN CITRATE [Concomitant]
  3. DOXIL [Concomitant]
  4. AMLODIPINE [Concomitant]
  5. ANAGRELIDE (ANAGRELIDE) [Concomitant]
  6. NEXIUM [Concomitant]
  7. PROZAC [Concomitant]
  8. ATIVAN [Concomitant]
  9. METOPROLOL TARTRATE [Concomitant]
  10. AVELOX [Concomitant]
  11. ALUMINUM HYDROXIDE AND MAGNESIUM TRISILICATE [Concomitant]
  12. PHENERGAN [Concomitant]
  13. AMBIEN [Concomitant]

REACTIONS (6)
  - CONSTIPATION [None]
  - DISEASE PROGRESSION [None]
  - OVARIAN CANCER [None]
  - PAIN [None]
  - PELVIC ABSCESS [None]
  - SMALL INTESTINAL OBSTRUCTION [None]
